FAERS Safety Report 10206502 (Version 1)
Quarter: 2014Q2

REPORT INFORMATION
  Report Type: Spontaneous
  Country: US (occurrence: None)
  Receive Date: 20140527
  Receipt Date: 20140527
  Transmission Date: 20141212
  Serious: Yes (Other)
  Sender: FDA-Public Use
  Company Number: None

PATIENT
  Age: 60 Year
  Sex: Female
  Weight: 63.5 kg

DRUGS (2)
  1. MONTELUKAST SODIUM [Suspect]
     Indication: ASTHMA
     Route: 048
     Dates: start: 20140215, end: 20140430
  2. MONTELUKAST SODIUM [Suspect]
     Route: 048
     Dates: start: 20140215, end: 20140430

REACTIONS (3)
  - Diarrhoea [None]
  - Headache [None]
  - Product substitution issue [None]
